FAERS Safety Report 10111156 (Version 1)
Quarter: 2014Q2

REPORT INFORMATION
  Report Type: Spontaneous
  Country: US (occurrence: None)
  Receive Date: 20140421
  Receipt Date: 20140421
  Transmission Date: 20141212
  Serious: No
  Sender: FDA-Public Use
  Company Number: AEGR000242

PATIENT
  Age: 71 Year
  Sex: Female
  Weight: 4.8 kg

DRUGS (8)
  1. JUXTAPID [Suspect]
     Indication: HYPERCHOLESTEROLAEMIA
     Route: 048
     Dates: start: 20131217
  2. ALPRAZOLAM (APRAZOLAM) [Concomitant]
  3. PLAVIX (CLOPIDOGREL BISULFATE) (CLOPIDOGREL BISULFATE) [Concomitant]
  4. ASPIRIN (ACETYLSALICYLIC ACID) [Concomitant]
  5. LEVOTHYROXINE SODIUM (LEVOTHYROXINE SODIUM) [Concomitant]
  6. OMEPRAZOLE (OMEPRAZOLE) [Concomitant]
  7. MECLIZINE HCL (MECLOZINE HYDROCHLORIDE) [Concomitant]
  8. LISINOPRIL (LISINOPRIL) [Concomitant]

REACTIONS (6)
  - Pain in extremity [None]
  - Myalgia [None]
  - Off label use [None]
  - Chest pain [None]
  - Abdominal discomfort [None]
  - Influenza like illness [None]
